FAERS Safety Report 18397845 (Version 1)
Quarter: 2020Q4

REPORT INFORMATION
  Report Type: Report from Study
  Country: JP (occurrence: JP)
  Receive Date: 20201019
  Receipt Date: 20201019
  Transmission Date: 20210114
  Serious: Yes (Hospitalization)
  Sender: FDA-Public Use
  Company Number: JP-MYLANLABS-2020M1086940

PATIENT
  Age: 60 Year
  Sex: Female

DRUGS (13)
  1. METHYLPREDNISOLONE. [Suspect]
     Active Substance: METHYLPREDNISOLONE
     Indication: INTERSTITIAL LUNG DISEASE
  2. TACROLIMUS. [Suspect]
     Active Substance: TACROLIMUS
     Indication: INTERSTITIAL LUNG DISEASE
  3. ALBUMIN [Concomitant]
     Active Substance: ALBUMIN HUMAN
     Indication: DERMATOMYOSITIS
     Dosage: ADMINISTERED VIA DOUBLE-LUMEN CATHETER INSERTED INTO THE FEMORAL VEIN IN TPE FOR REPLACEMENT FLUID
     Route: 065
  4. ALBUMIN [Concomitant]
     Active Substance: ALBUMIN HUMAN
     Indication: INTERSTITIAL LUNG DISEASE
  5. TACROLIMUS. [Suspect]
     Active Substance: TACROLIMUS
     Indication: DERMATOMYOSITIS
     Dosage: DOSES WERE ADJUSTED TO MAINTAIN A SERUM TROUGH LEVEL WITHIN 10-12 NG/ML
     Route: 065
  6. PREDNISOLONE. [Suspect]
     Active Substance: PREDNISOLONE
     Indication: INTERSTITIAL LUNG DISEASE
  7. CICLOSPORIN [Suspect]
     Active Substance: CYCLOSPORINE
     Indication: DERMATOMYOSITIS
     Dosage: DOSE OF CICLOSPORIN WAS ADJUSTED TO MAINTAIN THE SERUM CONCENTRATION WITHIN THE TARGET LEVEL OF 1600
     Route: 065
  8. CYCLOPHOSPHAMIDE. [Suspect]
     Active Substance: CYCLOPHOSPHAMIDE
     Indication: INTERSTITIAL LUNG DISEASE
  9. CICLOSPORIN [Suspect]
     Active Substance: CYCLOSPORINE
     Indication: INTERSTITIAL LUNG DISEASE
  10. PREDNISOLONE. [Suspect]
     Active Substance: PREDNISOLONE
     Indication: DERMATOMYOSITIS
     Dosage: 55 MILLIGRAM, QD
     Route: 048
  11. METHYLPREDNISOLONE. [Suspect]
     Active Substance: METHYLPREDNISOLONE
     Indication: DERMATOMYOSITIS
     Dosage: 1000 MILLIGRAM, QD
     Route: 065
  12. ALBUMIN [Concomitant]
     Active Substance: ALBUMIN HUMAN
     Indication: FLUID REPLACEMENT
  13. CYCLOPHOSPHAMIDE. [Suspect]
     Active Substance: CYCLOPHOSPHAMIDE
     Indication: DERMATOMYOSITIS
     Dosage: PULSE THERAPY; EVERY 2 WEEKS FOR THE FIRST SIX SESSIONS, BUT DATE OF IVCY ADMINISTRATION WAS SOMETIM
     Route: 042

REACTIONS (4)
  - Cytomegalovirus infection reactivation [Unknown]
  - Myelosuppression [Unknown]
  - Drug ineffective [Unknown]
  - Subcutaneous haematoma [Unknown]
